FAERS Safety Report 10200030 (Version 1)
Quarter: 2014Q2

REPORT INFORMATION
  Report Type: Spontaneous
  Country: DE (occurrence: DE)
  Receive Date: 20140527
  Receipt Date: 20140527
  Transmission Date: 20141212
  Serious: Yes (Other)
  Sender: FDA-Public Use
  Company Number: DE-TEVA-483798GER

PATIENT
  Age: 37 Year
  Sex: Female
  Weight: 68 kg

DRUGS (4)
  1. PREDNISOLON [Suspect]
     Indication: CROHN^S DISEASE
     Dosage: 40 MG/D DOSAGE REDUCTION TO 5MG/D
     Route: 048
  2. DIOVAN [Suspect]
     Indication: HYPERTENSION
     Dosage: 120 MILLIGRAM DAILY;
     Route: 048
     Dates: start: 20100906
  3. HUMIRA 40 MG INJEKTIONSLOESUNG [Suspect]
     Indication: CROHN^S DISEASE
     Route: 058
  4. FOLIO FORTE [Concomitant]
     Indication: PROPHYLAXIS OF NEURAL TUBE DEFECT
     Dosage: .8 MILLIGRAM DAILY;
     Route: 048
     Dates: start: 20100906, end: 20101214

REACTIONS (3)
  - Abortion missed [Unknown]
  - Maternal exposure during pregnancy [None]
  - Pregnancy [None]
